FAERS Safety Report 6156657-0 (Version None)
Quarter: 2009Q2

REPORT INFORMATION
  Report Type: 
  Country: None (occurrence: None)
  Receive Date: 20090416
  Receipt Date: 20090408
  Transmission Date: 20091009
  Serious: Yes (Hospitalization)
  Sender: FDA-Public Use
  Company Number: AU-BAXTER-2009BH005338

PATIENT
  Sex: Male

DRUGS (1)
  1. TISSUCOL/TISSEEL DUO STIM4 [Suspect]
     Indication: CORNEAL TRANSPLANT
     Route: 065
     Dates: start: 20090407, end: 20090407

REACTIONS (1)
  - ENGRAFT FAILURE [None]
